FAERS Safety Report 24863412 (Version 1)
Quarter: 2025Q1

REPORT INFORMATION
  Report Type: Spontaneous
  Country: US (occurrence: US)
  Receive Date: 20250120
  Receipt Date: 20250120
  Transmission Date: 20250409
  Serious: No
  Sender: SANOFI AVENTIS
  Company Number: US-SANOFI-02372770

PATIENT
  Age: 85 Year
  Sex: Female

DRUGS (1)
  1. TOUJEO [Suspect]
     Active Substance: INSULIN GLARGINE
     Dosage: 48 IU, QD
     Route: 065

REACTIONS (2)
  - Pain in extremity [Unknown]
  - Product dose omission issue [Unknown]
